FAERS Safety Report 17021353 (Version 1)
Quarter: 2019Q4

REPORT INFORMATION
  Report Type: Report from Study
  Country: DK (occurrence: DK)
  Receive Date: 20191112
  Receipt Date: 20191112
  Transmission Date: 20200122
  Serious: Yes (Other)
  Sender: FDA-Public Use
  Company Number: DK-MYLANLABS-2019M1108613

PATIENT
  Age: 76 Year
  Sex: Male

DRUGS (6)
  1. ITRACONAZOLE. [Concomitant]
     Active Substance: ITRACONAZOLE
     Indication: TRICHOPHYTOSIS
     Route: 065
  2. AMOROLFINE [Concomitant]
     Active Substance: AMOROLFINE
     Indication: TRICHOPHYTOSIS
     Route: 061
  3. KETOCONAZOLE. [Concomitant]
     Active Substance: KETOCONAZOLE
     Indication: TRICHOPHYTOSIS
     Route: 061
  4. TERBINAFINE. [Suspect]
     Active Substance: TERBINAFINE
     Indication: TRICHOPHYTOSIS
     Dosage: INCLUDING 2COURSES OF TERBINAFINE HYDROCHLORIDE ONCE APPLICATION ONLY; TOTAL DURATION 8WEEKS
     Route: 061
  5. TERBINAFINE. [Suspect]
     Active Substance: TERBINAFINE
     Indication: TRICHOPHYTOSIS
     Dosage: 2 COURSES
     Route: 065
  6. TERBINAFINE. [Suspect]
     Active Substance: TERBINAFINE
     Dosage: INCLUDING 2COURSES OF TERBINAFINE [TERBINAFINE HYDROCHLORIDE] ONCE APPLICATION ONLY
     Route: 061

REACTIONS (1)
  - Pathogen resistance [Unknown]
